FAERS Safety Report 16086591 (Version 1)
Quarter: 2019Q1

REPORT INFORMATION
  Report Type: Spontaneous
  Country: ES (occurrence: ES)
  Receive Date: 20190318
  Receipt Date: 20190318
  Transmission Date: 20190418
  Serious: Yes (Hospitalization)
  Sender: FDA-Public Use
  Company Number: ES-ELI_LILLY_AND_COMPANY-ES201903007621

PATIENT
  Age: 60 Year
  Sex: Male
  Weight: 68 kg

DRUGS (7)
  1. PREDNISONA ALONGA [Concomitant]
     Indication: PAIN
     Dosage: 50 MG, UNK
     Dates: start: 20180801, end: 20180815
  2. GABAPENTINA TEVA [Concomitant]
     Indication: NEURALGIA
     Dosage: 2400 MG, DAILY
     Route: 048
     Dates: start: 20180101
  3. AMOXICILINA/ACIDO CLAVULANICO GENERIS [Concomitant]
     Indication: FISTULA
     Dosage: 1, DF, EVERY 8 HOURS
     Route: 048
     Dates: start: 20180801, end: 20180815
  4. ERBITUX [Suspect]
     Active Substance: CETUXIMAB
     Indication: OROPHARYNGEAL SQUAMOUS CELL CARCINOMA
     Dosage: 250 MG/M2, UNK
     Route: 065
     Dates: start: 20180308, end: 20180823
  5. FENDIVIA [Concomitant]
     Active Substance: FENTANYL
     Indication: PAIN
     Dosage: 33.3 MG, UNK
     Route: 062
     Dates: start: 20180101
  6. ENANTYUM [Suspect]
     Active Substance: DEXKETOPROFEN TROMETAMOL
     Indication: PAIN
     Dosage: 75 MG, DAILY
     Route: 048
     Dates: start: 20180201
  7. INSTANYL [Concomitant]
     Active Substance: FENTANYL
     Indication: BREAKTHROUGH PAIN
     Dosage: 1600 MG, UNK
     Route: 055
     Dates: start: 20180101

REACTIONS (1)
  - Colitis [Recovered/Resolved]

NARRATIVE: CASE EVENT DATE: 20180901
